FAERS Safety Report 19072265 (Version 1)
Quarter: 2021Q1

REPORT INFORMATION
  Report Type: Report from Study
  Country: BR (occurrence: BR)
  Receive Date: 20210330
  Receipt Date: 20210330
  Transmission Date: 20210420
  Serious: Yes (Death, Hospitalization)
  Sender: FDA-Public Use
  Company Number: BR-EMD SERONO-9228589

PATIENT
  Sex: Female

DRUGS (2)
  1. BIO?MANGUINHOS BETAINTERFERONA 1A 44 MCG [Suspect]
     Active Substance: INTERFERON BETA-1A
     Indication: MULTIPLE SCLEROSIS
     Route: 058
     Dates: start: 20210105, end: 20210311
  2. REBIF [Suspect]
     Active Substance: INTERFERON BETA-1A
     Indication: MULTIPLE SCLEROSIS
     Route: 058
     Dates: start: 20090304, end: 20210104

REACTIONS (6)
  - Rheumatic fever [Fatal]
  - Amyotrophic lateral sclerosis [Fatal]
  - Coronary artery disease [Fatal]
  - Ischaemic cardiomyopathy [Fatal]
  - Hypertension [Fatal]
  - COVID-19 [Fatal]
